FAERS Safety Report 12066774 (Version 1)
Quarter: 2016Q1

REPORT INFORMATION
  Report Type: Other
  Country: PL (occurrence: PL)
  Receive Date: 20160211
  Receipt Date: 20160211
  Transmission Date: 20160526
  Serious: Yes (Other)
  Sender: FDA-Public Use
  Company Number: PL-EMD SERONO-8067020

PATIENT
  Age: 6 Year
  Sex: Female

DRUGS (1)
  1. SAIZEN [Suspect]
     Active Substance: SOMATROPIN
     Indication: COSTELLO SYNDROME
     Dosage: 0.031 MG/KG/DAY
     Route: 058

REACTIONS (3)
  - Off label use [Unknown]
  - Mobility decreased [Recovering/Resolving]
  - Disease progression [Recovering/Resolving]
